FAERS Safety Report 18747195 (Version 1)
Quarter: 2021Q1

REPORT INFORMATION
  Report Type: Spontaneous
  Country: PT (occurrence: PT)
  Receive Date: 20210115
  Receipt Date: 20210115
  Transmission Date: 20210419
  Serious: Yes (Other)
  Sender: FDA-Public Use
  Company Number: PT-GILEAD-2021-0512902

PATIENT
  Age: 66 Year
  Sex: Male

DRUGS (1)
  1. VEKLURY [Suspect]
     Active Substance: REMDESIVIR
     Indication: COVID-19 TREATMENT
     Dosage: 100 MG, QD
     Route: 042
     Dates: start: 20201109, end: 20201114

REACTIONS (2)
  - Transaminases increased [Unknown]
  - Cholestasis [Unknown]
